FAERS Safety Report 8823182 (Version 1)
Quarter: 2012Q4

REPORT INFORMATION
  Report Type: 
  Country: CN (occurrence: CN)
  Receive Date: 20121003
  Receipt Date: 20121003
  Transmission Date: 20130627
  Serious: Yes (Other)
  Sender: FDA-Public Use
  Company Number: CN-PFIZER INC-2012240953

PATIENT
  Age: 80 Year
  Sex: Male

DRUGS (9)
  1. VORICONAZOLE [Suspect]
     Dosage: 400 mg, 2x/day
     Route: 041
     Dates: start: 20111125, end: 20111125
  2. VORICONAZOLE [Suspect]
     Dosage: 200 mg, 2x/day
     Route: 041
     Dates: start: 20111126, end: 20111202
  3. VORICONAZOLE [Suspect]
     Dosage: 200 mg, 1x/day
     Route: 041
     Dates: start: 20111203, end: 20111206
  4. VORICONAZOLE [Suspect]
     Dosage: 200 mg, 1x/day
     Route: 045
     Dates: start: 20111203, end: 20111206
  5. MEROPENEM [Concomitant]
     Indication: INFECTION
     Dosage: 1.0 g, 3x/day
     Dates: start: 20111102
  6. CILASTATIN SODIUM W/IMIPENEM [Concomitant]
     Dosage: 3 g, 3x/day
     Route: 041
     Dates: start: 20111031, end: 20111125
  7. VANCOMYCIN [Concomitant]
     Dosage: 1 g, 2x/day
     Route: 041
     Dates: start: 20111101, end: 20111125
  8. CASPOFUNGIN [Concomitant]
     Dosage: 50 mg, 1x/day
     Route: 041
     Dates: start: 20111102, end: 20111125
  9. MICAFUNGIN [Concomitant]
     Dosage: 300 mg, 1x/day
     Route: 041
     Dates: start: 20111102, end: 20111125

REACTIONS (2)
  - Renal failure acute [Recovered/Resolved]
  - Renal tubular acidosis [Recovered/Resolved]
